FAERS Safety Report 4642133-0 (Version None)
Quarter: 2005Q2

REPORT INFORMATION
  Report Type: 
  Country: None (occurrence: None)
  Receive Date: 20050421
  Receipt Date: 20050421
  Transmission Date: 20051028
  Serious: Yes (Other)
  Sender: FDA-Public Use
  Company Number: None

PATIENT
  Sex: Male

DRUGS (4)
  1. HALDOL [Suspect]
     Indication: PSYCHOTIC DISORDER
     Dosage: Q 12 H
     Dates: start: 20050330, end: 20050406
  2. SEROQUEL [Concomitant]
  3. ATIVAN [Concomitant]
  4. BENADRYL [Concomitant]

REACTIONS (1)
  - OPISTHOTONUS [None]
